FAERS Safety Report 8883016 (Version 1)
Quarter: 2012Q4

REPORT INFORMATION
  Report Type: 
  Country: KR (occurrence: KR)
  Receive Date: 20121103
  Receipt Date: 20121103
  Transmission Date: 20130627
  Serious: Yes (Hospitalization)
  Sender: FDA-Public Use
  Company Number: KR-ACCORD-015076

PATIENT
  Age: 22 Year
  Sex: Female
  Weight: 49 kg

DRUGS (2)
  1. TACROLIMUS [Suspect]
     Indication: CARDIAC TRANSPLANT
     Dosage: 0.19 mg/kg/d
  2. MYCOPHENOLATE MOFETIL [Suspect]
     Indication: CARDIAC TRANSPLANT

REACTIONS (6)
  - Drug intolerance [Unknown]
  - Febrile neutropenia [Unknown]
  - Pancreatitis acute [Recovered/Resolved]
  - Diabetic ketoacidosis [Recovered/Resolved]
  - Drug level increased [Recovered/Resolved]
  - Off label use [Unknown]
